FAERS Safety Report 25570218 (Version 2)
Quarter: 2025Q3

REPORT INFORMATION
  Report Type: Spontaneous
  Country: US (occurrence: US)
  Receive Date: 20250717
  Receipt Date: 20250730
  Transmission Date: 20251021
  Serious: Yes (Hospitalization)
  Sender: TEVA
  Company Number: US-TEVA-VS-3349604

PATIENT
  Age: 54 Year
  Sex: Female

DRUGS (3)
  1. WARFARIN [Interacting]
     Active Substance: WARFARIN
     Indication: Anticoagulant therapy
     Route: 065
  2. HERBALS\TURMERIC [Interacting]
     Active Substance: HERBALS\TURMERIC
     Indication: Phytotherapy
     Route: 065
  3. HERBALS\TURMERIC [Interacting]
     Active Substance: HERBALS\TURMERIC
     Indication: Phytotherapy
     Dosage: INITIALLY RECEIVED 1 CAPSULE AND THEN INCREASED TO 5 CAPSULES
     Route: 065

REACTIONS (4)
  - International normalised ratio increased [Recovering/Resolving]
  - Herbal interaction [Unknown]
  - Haematochezia [Recovered/Resolved]
  - Drug interaction [Unknown]
